FAERS Safety Report 22201377 (Version 1)
Quarter: 2023Q2

REPORT INFORMATION
  Report Type: Spontaneous
  Country: FR (occurrence: FR)
  Receive Date: 20230412
  Receipt Date: 20230412
  Transmission Date: 20230722
  Serious: Yes (Hospitalization)
  Sender: FDA-Public Use
  Company Number: None

PATIENT
  Age: 63 Year
  Sex: Female
  Weight: 59.6 kg

DRUGS (20)
  1. METHOTREXATE [Suspect]
     Active Substance: METHOTREXATE
     Indication: Non-Hodgkin^s lymphoma
     Dosage: C4
     Dates: start: 20220708, end: 20220708
  2. CYCLOPHOSPHAMIDE [Suspect]
     Active Substance: CYCLOPHOSPHAMIDE
     Indication: Non-Hodgkin^s lymphoma
     Dosage: C4
     Dates: start: 20220708, end: 20220708
  3. DOXORUBICIN HYDROCHLORIDE [Suspect]
     Active Substance: DOXORUBICIN HYDROCHLORIDE
     Indication: Non-Hodgkin^s lymphoma
     Dosage: C4
     Dates: start: 20220708, end: 20220708
  4. BACTRIM [Suspect]
     Active Substance: SULFAMETHOXAZOLE\TRIMETHOPRIM
     Indication: Product used for unknown indication
     Dosage: EVERY MONDAY - WEDNESDAY - FRIDAY
  5. RITUXIMAB [Suspect]
     Active Substance: RITUXIMAB
     Indication: Non-Hodgkin^s lymphoma
     Dosage: C4
     Dates: start: 20220708, end: 20220708
  6. VINCRISTINE SULFATE [Suspect]
     Active Substance: VINCRISTINE SULFATE
     Indication: Non-Hodgkin^s lymphoma
     Dosage: C4
     Dates: start: 20220708, end: 20220708
  7. TRANSIPEG [Concomitant]
     Dosage: AS REQUIRED
  8. PRIMPERAN [Concomitant]
     Active Substance: METOCLOPRAMIDE HYDROCHLORIDE
     Indication: Nausea
     Dosage: IF NAUSEA
  9. LETROZOLE [Concomitant]
     Active Substance: LETROZOLE
     Dosage: 1-0-0
  10. ARANESP [Concomitant]
     Active Substance: DARBEPOETIN ALFA
     Dosage: STRENGTH: 150 MICROGRAMS, IN PRE-FILLED SYRINGE, EVERY MONDAY
  11. CALCIUM ALGINATE [Concomitant]
     Active Substance: CALCIUM ALGINATE
  12. VALACYCLOVIR HYDROCHLORIDE [Concomitant]
     Active Substance: VALACYCLOVIR HYDROCHLORIDE
     Dosage: 1-0-1
  13. ACETAMINOPHEN [Concomitant]
     Active Substance: ACETAMINOPHEN
     Dosage: AS REQUIRED
  14. FUNGIZONE [Concomitant]
     Active Substance: AMPHOTERICIN B
  15. TITANOREINE [Concomitant]
     Active Substance: CARRAGEENAN\TITANIUM\ZINC
     Dosage: 1-0-1
  16. PANTOPRAZOLE [Concomitant]
     Active Substance: PANTOPRAZOLE
     Dosage: 1-0-1
  17. REFRESH CELLUVISC [Concomitant]
     Active Substance: CARBOXYMETHYLCELLULOSE SODIUM
     Dosage: 4 MG/0.4 ML, EYE DROPS IN SINGLE-DOSE CONTAINERS
  18. DELORAZEPAM [Concomitant]
     Active Substance: DELORAZEPAM
     Dosage: AS REQUIRED
  19. DOSTINEX [Concomitant]
     Active Substance: CABERGOLINE
     Dosage: STRENGTH: 0.5 MG, ON SATURDAY
  20. MYFORTIC [Concomitant]
     Active Substance: MYCOPHENOLATE SODIUM
     Dosage: STRENGTH:360 MG, GASTRO-RESISTANT FILM-COATED TABLET, 2-0-1

REACTIONS (3)
  - Clostridium difficile colitis [Recovered/Resolved]
  - Mucosal inflammation [Recovered/Resolved]
  - Febrile bone marrow aplasia [Recovered/Resolved]

NARRATIVE: CASE EVENT DATE: 20220709
